FAERS Safety Report 8420292-1 (Version None)
Quarter: 2012Q2

REPORT INFORMATION
  Report Type: 
  Country: None (occurrence: None)
  Receive Date: 20120607
  Receipt Date: 20120524
  Transmission Date: 20120825
  Serious: Yes (Other)
  Sender: FDA-Public Use
  Company Number: CHPA2012US011154

PATIENT
  Sex: Male

DRUGS (2)
  1. EXCEDRIN (MIGRAINE) [Suspect]
     Dosage: 2-4 DF, UNK
     Route: 048
  2. EXCEDRIN (MIGRAINE) [Suspect]
     Indication: MIGRAINE
     Dosage: 2-4 DF, PRN
     Route: 048
     Dates: start: 19890101

REACTIONS (4)
  - ROAD TRAFFIC ACCIDENT [None]
  - WRIST FRACTURE [None]
  - EXPIRED DRUG ADMINISTERED [None]
  - OVERDOSE [None]
